FAERS Safety Report 5227920-2 (Version None)
Quarter: 2007Q1

REPORT INFORMATION
  Report Type: 
  Country: None (occurrence: None)
  Receive Date: 20070202
  Receipt Date: 20070102
  Transmission Date: 20070707
  Serious: Yes (Hospitalization, Other)
  Sender: FDA-Public Use
  Company Number: US-PFIZER INC-2006027292

PATIENT
  Sex: Female
  Weight: 50.8 kg

DRUGS (4)
  1. BEXTRA [Suspect]
     Indication: TENDONITIS
     Route: 048
     Dates: start: 20031201, end: 20031219
  2. NYQUIL [Concomitant]
  3. CORTISONE ACETATE [Concomitant]
  4. PRILOSEC [Concomitant]

REACTIONS (1)
  - ERYTHEMA MULTIFORME [None]
